FAERS Safety Report 6368140-8 (Version None)
Quarter: 2009Q3

REPORT INFORMATION
  Report Type: 
  Country: None (occurrence: None)
  Receive Date: 20090922
  Receipt Date: 20090910
  Transmission Date: 20100115
  Serious: Yes (Death, Other)
  Sender: FDA-Public Use
  Company Number: JP-WYE-H10935109

PATIENT
  Sex: Male
  Weight: 41 kg

DRUGS (4)
  1. ZOSYN [Suspect]
     Indication: PNEUMONIA ASPIRATION
     Route: 041
     Dates: start: 20090826, end: 20090903
  2. TICLOPIDINE HCL [Concomitant]
     Dosage: 200 MG DAILY
     Route: 048
     Dates: end: 20090826
  3. URSO 250 [Concomitant]
     Dosage: 600 MG DAILY
     Route: 048
     Dates: end: 20090826
  4. MUCOSTA [Concomitant]
     Dosage: 200 MG DAILY
     Route: 048
     Dates: end: 20090426

REACTIONS (8)
  - ACUTE RESPIRATORY DISTRESS SYNDROME [None]
  - DISEASE PROGRESSION [None]
  - DISSEMINATED INTRAVASCULAR COAGULATION [None]
  - HYPOALBUMINAEMIA [None]
  - PNEUMONIA [None]
  - PULMONARY OEDEMA [None]
  - RESPIRATORY FAILURE [None]
  - THROMBOCYTOPENIA [None]
